FAERS Safety Report 6697551-6 (Version None)
Quarter: 2010Q2

REPORT INFORMATION
  Report Type: 
  Country: None (occurrence: None)
  Receive Date: 20100426
  Receipt Date: 20100222
  Transmission Date: 20101027
  Serious: No
  Sender: FDA-Public Use
  Company Number: US-ABBOTT-10P-163-0625922-00

PATIENT
  Sex: Female
  Weight: 61.744 kg

DRUGS (6)
  1. AZMACORT [Suspect]
     Indication: ASTHMA
     Dates: start: 20040101
  2. ASPIRIN [Concomitant]
     Indication: DRUG USE FOR UNKNOWN INDICATION
  3. MULTI-VITAMIN [Concomitant]
     Indication: DRUG USE FOR UNKNOWN INDICATION
  4. CALCIUM WITH VITAMIN D [Concomitant]
     Indication: DRUG USE FOR UNKNOWN INDICATION
  5. MAGNESIUM [Concomitant]
     Indication: DRUG USE FOR UNKNOWN INDICATION
  6. VITAMIN C [Concomitant]
     Indication: DRUG USE FOR UNKNOWN INDICATION

REACTIONS (12)
  - COUGH [None]
  - DECREASED APPETITE [None]
  - FEELING ABNORMAL [None]
  - GLOSSODYNIA [None]
  - IMPAIRED DRIVING ABILITY [None]
  - MALAISE [None]
  - MEMORY IMPAIRMENT [None]
  - MYALGIA [None]
  - NECK PAIN [None]
  - PAIN IN EXTREMITY [None]
  - SWOLLEN TONGUE [None]
  - URINARY INCONTINENCE [None]
